FAERS Safety Report 4642885-X (Version None)
Quarter: 2005Q2

REPORT INFORMATION
  Report Type: 
  Country: None (occurrence: None)
  Receive Date: 20050421
  Receipt Date: 20050407
  Transmission Date: 20051028
  Serious: Yes (Hospitalization)
  Sender: FDA-Public Use
  Company Number: 2005SE01076

PATIENT
  Age: 20 Month
  Sex: Female
  Weight: 11.3 kg

DRUGS (5)
  1. SPIROCORT [Suspect]
     Indication: ASTHMA
     Dosage: 400 UG BID IH
     Route: 055
     Dates: start: 20041101, end: 20041201
  2. SPIROCORT [Suspect]
     Indication: ASTHMA
     Dosage: 400 UG Q4H IH
     Route: 055
     Dates: start: 20041201
  3. SPIROCORT [Suspect]
     Indication: ASTHMA
     Dosage: 200 UG BID IH
     Route: 055
  4. BRICANYL [Concomitant]
  5. FLEMOXIN [Concomitant]

REACTIONS (6)
  - ADRENAL DISORDER [None]
  - CARNITINE DECREASED [None]
  - DISSOCIATION [None]
  - HYPOGLYCAEMIA [None]
  - LETHARGY [None]
  - PNEUMONIA [None]
